FAERS Safety Report 11258513 (Version 1)
Quarter: 2015Q3

REPORT INFORMATION
  Report Type: Report from Study
  Country: CO (occurrence: CO)
  Receive Date: 20150710
  Receipt Date: 20150710
  Transmission Date: 20151125
  Serious: Yes (Life-Threatening, Other)
  Sender: FDA-Public Use
  Company Number: CO-INCYTE CORPORATION-2015IN003123

PATIENT
  Sex: Male
  Weight: 75 kg

DRUGS (4)
  1. PREDNISOLONE. [Concomitant]
     Active Substance: PREDNISOLONE
     Indication: PRODUCT USED FOR UNKNOWN INDICATION
     Dosage: UNK
     Route: 065
  2. JAKAFI [Suspect]
     Active Substance: RUXOLITINIB
     Dosage: 5 MG, QW3
     Route: 065
     Dates: start: 201503, end: 201505
  3. DANAZOL. [Concomitant]
     Active Substance: DANAZOL
     Indication: PRODUCT USED FOR UNKNOWN INDICATION
     Dosage: UNK
     Route: 065
  4. JAKAFI [Suspect]
     Active Substance: RUXOLITINIB
     Indication: MYELOFIBROSIS
     Dosage: 5 MG, QD
     Route: 065
     Dates: start: 201501, end: 201503

REACTIONS (6)
  - Platelet count decreased [Recovered/Resolved]
  - Blood urine present [Unknown]
  - Blood creatinine increased [Unknown]
  - Quality of life decreased [Unknown]
  - Drug intolerance [Unknown]
  - Hypertension [Unknown]
